FAERS Safety Report 8414968-X (Version None)
Quarter: 2012Q2

REPORT INFORMATION
  Report Type: 
  Country: None (occurrence: None)
  Receive Date: 20120530
  Receipt Date: 20120521
  Transmission Date: 20120825
  Serious: Yes (Hospitalization, Other)
  Sender: FDA-Public Use
  Company Number: 2012SP000572

PATIENT
  Sex: Male

DRUGS (3)
  1. BOCEPREVIR [Suspect]
     Indication: HEPATITIS C
     Dates: start: 20111230, end: 20120515
  2. PEG-INTRON [Suspect]
     Indication: HEPATITIS C
     Dates: start: 20111202, end: 20120515
  3. RIBAVIRIN [Suspect]
     Indication: HEPATITIS C
     Dates: start: 20111202, end: 20120515

REACTIONS (21)
  - NAUSEA [None]
  - SLUGGISHNESS [None]
  - DECREASED APPETITE [None]
  - DEPRESSION [None]
  - DYSURIA [None]
  - FATIGUE [None]
  - DIZZINESS [None]
  - EYE PAIN [None]
  - HEPATIC PAIN [None]
  - APHAGIA [None]
  - FLANK PAIN [None]
  - ASTHENIA [None]
  - SINUS DISORDER [None]
  - SUICIDAL IDEATION [None]
  - HEPATIC VEIN THROMBOSIS [None]
  - WEIGHT DECREASED [None]
  - LOSS OF CONSCIOUSNESS [None]
  - HEADACHE [None]
  - BONE PAIN [None]
  - DEHYDRATION [None]
  - FLUID INTAKE REDUCED [None]
